FAERS Safety Report 9250861 (Version 1)
Quarter: 2013Q1

REPORT INFORMATION
  Report Type: Spontaneous
  Country: US (occurrence: None)
  Receive Date: 20130305
  Receipt Date: 20130305
  Transmission Date: 20140127
  Serious: Yes (Disabling, Other)
  Sender: FDA-Public Use
  Company Number: 163-21880-12090264

PATIENT
  Age: 65 Year
  Sex: Male

DRUGS (3)
  1. REVLIMID (LENALIDOMIDE) (CAPSULES) [Suspect]
     Indication: LYMPHOMA
     Dosage: 21 IN 28 D
     Route: 048
     Dates: start: 201208, end: 20120831
  2. VELCADE (BORTEZOMIB) [Suspect]
  3. RITUXIMAB (RITUXIMAB) [Suspect]

REACTIONS (3)
  - Drug ineffective [None]
  - Lymphoma [None]
  - Disease progression [None]
